FAERS Safety Report 7202000 (Version 46)
Quarter: 2016Q4

REPORT INFORMATION
  Report Type: Report from Study
  Country: CA (occurrence: CA)
  Receive Date: 20091207
  Receipt Date: 20161108
  Transmission Date: 20170207
  Serious: Yes (Hospitalization, Other)
  Sender: FDA-Public Use
  Company Number: PHHY2009CA19259

PATIENT
  Age: 81 Year
  Sex: Female

DRUGS (7)
  1. SANDOSTATIN LAR DEPOT [Suspect]
     Active Substance: OCTREOTIDE ACETATE
     Indication: ACROMEGALY
     Dosage: 30 MG, QMO (EVERY 4 WEEKS)
     Route: 030
     Dates: start: 20041103
  2. SANDOSTATIN LAR DEPOT [Suspect]
     Active Substance: OCTREOTIDE ACETATE
     Dosage: 50 MG, TIW (EVERY 3 WEEKS, 2 DOSES)
     Route: 030
     Dates: start: 20160915, end: 20161005
  3. SANDOSTATIN LAR DEPOT [Suspect]
     Active Substance: OCTREOTIDE ACETATE
     Dosage: 50 MG, QMO (EVERY 4 WEEKS)
     Route: 030
     Dates: end: 20160824
  4. INFUFER [Concomitant]
     Indication: PRODUCT USED FOR UNKNOWN INDICATION
     Dosage: 50 MG, TWICE A WEEK
     Route: 065
  5. SANDOSTATIN LAR DEPOT [Suspect]
     Active Substance: OCTREOTIDE ACETATE
     Dosage: 40 MG, QMO (EVERY 4 WEEKS)
     Route: 030
  6. L-THYROXINE [Concomitant]
     Active Substance: LEVOTHYROXINE
     Indication: PRODUCT USED FOR UNKNOWN INDICATION
     Dosage: 125 MG, QD
     Route: 065
  7. SANDOSTATIN LAR DEPOT [Suspect]
     Active Substance: OCTREOTIDE ACETATE
     Dosage: 60 MG, QMO EVERY 4 WEEKS
     Route: 030
     Dates: start: 20161027

REACTIONS (56)
  - Mobility decreased [Unknown]
  - Hyponatraemia [Unknown]
  - Asthenia [Not Recovered/Not Resolved]
  - Vomiting [Unknown]
  - Skin injury [Unknown]
  - Pallor [Unknown]
  - Facial pain [Not Recovered/Not Resolved]
  - Neoplasm progression [Not Recovered/Not Resolved]
  - Blood pressure diastolic decreased [Unknown]
  - Eyelid ptosis [Unknown]
  - Depressed mood [Unknown]
  - Blood growth hormone increased [Unknown]
  - Blood pressure systolic increased [Unknown]
  - Arthralgia [Unknown]
  - Eye disorder [Recovering/Resolving]
  - Fatigue [Unknown]
  - Feeling cold [Unknown]
  - Fall [Unknown]
  - Visual impairment [Not Recovered/Not Resolved]
  - Anaemia [Unknown]
  - Anxiety [Unknown]
  - Muscle injury [Unknown]
  - Contusion [Unknown]
  - Stress [Unknown]
  - Abdominal discomfort [Unknown]
  - General physical health deterioration [Unknown]
  - Cerebral haemangioma [Not Recovered/Not Resolved]
  - Hypoaesthesia [Unknown]
  - Headache [Unknown]
  - Pain in jaw [Unknown]
  - Thyroid disorder [Not Recovered/Not Resolved]
  - Nuclear magnetic resonance imaging abnormal [Unknown]
  - Cell marker increased [Unknown]
  - Scar [Unknown]
  - Diplopia [Unknown]
  - Injection site haemorrhage [Recovering/Resolving]
  - Panic reaction [Unknown]
  - Emotional disorder [Unknown]
  - Sneezing [Unknown]
  - Insulin-like growth factor increased [Not Recovered/Not Resolved]
  - Depression [Unknown]
  - Needle issue [Unknown]
  - Ear infection [Unknown]
  - Eyelid oedema [Recovering/Resolving]
  - Dizziness [Recovering/Resolving]
  - Heart rate irregular [Unknown]
  - Malaise [Unknown]
  - Hordeolum [Unknown]
  - Eyelid infection [Unknown]
  - Neck pain [Unknown]
  - Eye infection [Recovering/Resolving]
  - Muscle spasms [Unknown]
  - Eyelid function disorder [Unknown]
  - Tremor [Unknown]
  - Musculoskeletal stiffness [Unknown]
  - Inappropriate schedule of drug administration [Unknown]

NARRATIVE: CASE EVENT DATE: 20140509
